FAERS Safety Report 8730111 (Version 2)
Quarter: 2012Q4

REPORT INFORMATION
  Report Type: 
  Country: DE (occurrence: DE)
  Receive Date: 20120817
  Receipt Date: 20120904
  Transmission Date: 20130627
  Serious: Yes (Other)
  Sender: FDA-Public Use
  Company Number: GXKR2012DE002628

PATIENT
  Sex: Male
  Weight: 73 kg

DRUGS (4)
  1. BISOPROLOL [Suspect]
     Dosage: 2.5 mg, QD
     Route: 048
     Dates: start: 2007
  2. RAMIPRIL [Suspect]
     Dosage: 5 mg, QD
     Route: 048
     Dates: start: 2007
  3. SIMVABETA [Concomitant]
     Dosage: 20 mg, QD
     Route: 048
     Dates: start: 2007
  4. MARCUMAR [Concomitant]
     Dosage: UNK UKN, UNK
     Route: 048
     Dates: start: 2007

REACTIONS (4)
  - Pulmonary fibrosis [Not Recovered/Not Resolved]
  - Oxygen saturation decreased [Not Recovered/Not Resolved]
  - Cough [Not Recovered/Not Resolved]
  - Asthenia [Not Recovered/Not Resolved]
